FAERS Safety Report 9799669 (Version 2)
Quarter: 2015Q3

REPORT INFORMATION
  Report Type: Spontaneous
  Country: US (occurrence: US)
  Receive Date: 20140106
  Receipt Date: 20150806
  Transmission Date: 20151125
  Serious: No
  Sender: FDA-Public Use
  Company Number: US-GILEAD-2010-0032677

PATIENT
  Age: 48 Year
  Sex: Female
  Weight: 121.11 kg

DRUGS (16)
  1. LETAIRIS [Suspect]
     Active Substance: AMBRISENTAN
     Indication: PULMONARY ARTERIAL HYPERTENSION
     Route: 048
     Dates: start: 20100208
  2. MULTIVITAMIN [Concomitant]
     Active Substance: VITAMINS
  3. SKELAXIN [Concomitant]
     Active Substance: METAXALONE
  4. ASTEPRO [Concomitant]
     Active Substance: AZELASTINE HYDROCHLORIDE
  5. PRAVASTATIN [Concomitant]
     Active Substance: PRAVASTATIN\PRAVASTATIN SODIUM
  6. WARFARIN [Concomitant]
     Active Substance: WARFARIN
  7. LISINOPRIL. [Concomitant]
     Active Substance: LISINOPRIL
  8. ALBUTEROL. [Concomitant]
     Active Substance: ALBUTEROL
  9. PARACETAMOL/HYDROCODONE BITARTRATE [Concomitant]
  10. VITAMIN D [Concomitant]
     Active Substance: CHOLECALCIFEROL
  11. CRESTOR [Concomitant]
     Active Substance: ROSUVASTATIN CALCIUM
  12. ADVAIR HFA [Concomitant]
     Active Substance: FLUTICASONE PROPIONATE\SALMETEROL XINAFOATE
  13. GLUCOSAMINE-CHONDR [Concomitant]
  14. HYDROCHLOROTHIAZIDE/TRIAMTERENE [Concomitant]
  15. BROVANA [Concomitant]
     Active Substance: ARFORMOTEROL TARTRATE
  16. CETIRIZINE [Concomitant]
     Active Substance: CETIRIZINE HYDROCHLORIDE

REACTIONS (1)
  - Oedema [Unknown]
